FAERS Safety Report 21865806 (Version 1)
Quarter: 2023Q1

REPORT INFORMATION
  Report Type: Spontaneous
  Country: US (occurrence: US)
  Receive Date: 20230116
  Receipt Date: 20230116
  Transmission Date: 20230418
  Serious: No
  Sender: FDA-Public Use
  Company Number: US-SA-SAC20230113001616

PATIENT
  Age: 18 Year
  Sex: Male
  Weight: 76.02 kg

DRUGS (3)
  1. DUPIXENT [Suspect]
     Active Substance: DUPILUMAB
     Indication: Dermatitis atopic
     Dosage: 300MG, QOW
     Route: 058
  2. PROTOPIC [Concomitant]
     Active Substance: TACROLIMUS
     Route: 061
  3. EUCRISA [Concomitant]
     Active Substance: CRISABOROLE

REACTIONS (1)
  - Treatment failure [Unknown]
